FAERS Safety Report 9381597 (Version 1)
Quarter: 2013Q3

REPORT INFORMATION
  Report Type: Spontaneous
  Country: US (occurrence: US)
  Receive Date: 20130703
  Receipt Date: 20130703
  Transmission Date: 20140515
  Serious: Yes (Hospitalization)
  Sender: FDA-Public Use
  Company Number: US-ELI_LILLY_AND_COMPANY-US201306003708

PATIENT
  Sex: Female
  Weight: 62.59 kg

DRUGS (3)
  1. ZYPREXA RELPREVV [Suspect]
     Indication: PSYCHOTIC DISORDER
     Dosage: 300 MG, MONTHLY (1/M)
     Route: 030
     Dates: start: 20130319
  2. ZYPREXA RELPREVV [Suspect]
     Dosage: 405 MG, MONTHLY (1/M)
     Route: 030
     Dates: start: 20130419
  3. CLOZAPINE [Concomitant]

REACTIONS (2)
  - White blood cell count [Not Recovered/Not Resolved]
  - Agitation [Not Recovered/Not Resolved]
